FAERS Safety Report 26173331 (Version 1)
Quarter: 2025Q4

REPORT INFORMATION
  Report Type: Spontaneous
  Country: US (occurrence: US)
  Receive Date: 20251218
  Receipt Date: 20251218
  Transmission Date: 20260118
  Serious: Yes (Other)
  Sender: BAXTER
  Company Number: US-BAXTER-2025BAX025784

PATIENT
  Age: 8 Decade
  Sex: Male

DRUGS (2)
  1. DAPTOMYCIN [Suspect]
     Active Substance: DAPTOMYCIN
     Indication: Streptococcal bacteraemia
     Route: 065
  2. CEFTAROLINE [Concomitant]
     Active Substance: CEFTAROLINE
     Route: 065

REACTIONS (8)
  - Hypervolaemia [Unknown]
  - Eosinophilic pneumonia [Recovering/Resolving]
  - Hypoxia [Unknown]
  - C-reactive protein increased [Unknown]
  - Leukocytosis [Unknown]
  - Red blood cell sedimentation rate increased [Unknown]
  - Cough [Unknown]
  - Dyspnoea [Unknown]
